FAERS Safety Report 4408801-0 (Version None)
Quarter: 2004Q3

REPORT INFORMATION
  Report Type: 
  Country: None (occurrence: None)
  Receive Date: 20040727
  Receipt Date: 20040405
  Transmission Date: 20050211
  Serious: Yes (Disabling)
  Sender: FDA-Public Use
  Company Number: GB-MERCK-0404GBR00037

PATIENT
  Age: 41 Year
  Sex: Male
  Weight: 64 kg

DRUGS (2)
  1. ACETAMINOPHEN [Concomitant]
     Indication: PAIN
     Route: 048
  2. VIOXX [Suspect]
     Indication: ARTHRITIS REACTIVE
     Route: 048
     Dates: start: 20030701, end: 20040103

REACTIONS (4)
  - AGGRESSION [None]
  - AMNESIA [None]
  - COGNITIVE DISORDER [None]
  - MOOD SWINGS [None]
